FAERS Safety Report 5149567-9 (Version None)
Quarter: 2006Q4

REPORT INFORMATION
  Report Type: 
  Country: None (occurrence: None)
  Receive Date: 20061113
  Receipt Date: 20060509
  Transmission Date: 20070319
  Serious: No
  Sender: FDA-Public Use
  Company Number: US-GLAXOSMITHKLINE-A0604849A

PATIENT
  Age: 60 Year
  Sex: Male

DRUGS (8)
  1. COREG [Suspect]
     Dosage: 12.5MG TWICE PER DAY
     Route: 048
     Dates: start: 20030101
  2. AVAPRO [Concomitant]
  3. NIASPAN [Concomitant]
  4. TRICOR [Concomitant]
  5. ASPIRIN [Concomitant]
  6. HUMULIN N [Concomitant]
  7. HUMULIN 70/30 [Concomitant]
  8. GLUCOPHAGE XR [Concomitant]

REACTIONS (1)
  - ERECTILE DYSFUNCTION [None]
